FAERS Safety Report 5678408-6 (Version None)
Quarter: 2008Q1

REPORT INFORMATION
  Report Type: 
  Country: None (occurrence: None)
  Receive Date: 20080321
  Receipt Date: 20080308
  Transmission Date: 20080703
  Serious: Yes (Other)
  Sender: FDA-Public Use
  Company Number: MIN-00308

PATIENT

DRUGS (1)
  1. MINOCYCLINE HCL [Suspect]
     Indication: CEREBROVASCULAR ARTERIOVENOUS MALFORMATION
     Dosage: 100 MG ORAL BID
     Route: 048

REACTIONS (1)
  - HAEMORRHAGE INTRACRANIAL [None]
